FAERS Safety Report 26011405 (Version 1)
Quarter: 2025Q4

REPORT INFORMATION
  Report Type: Spontaneous
  Country: US (occurrence: None)
  Receive Date: 20251106
  Receipt Date: 20251106
  Transmission Date: 20260117
  Serious: Yes (Hospitalization)
  Sender: FDA-CTU
  Company Number: None

PATIENT
  Age: 53 Year
  Sex: Female

DRUGS (10)
  1. ZEPBOUND [Suspect]
     Active Substance: TIRZEPATIDE
     Indication: Weight decreased
  2. FLUOXETINE HYDROCHLORIDE [Concomitant]
     Active Substance: FLUOXETINE HYDROCHLORIDE
  3. LISINOPRIL [Concomitant]
     Active Substance: LISINOPRIL
  4. ALPRAZOLAM [Concomitant]
     Active Substance: ALPRAZOLAM
  5. Clonzaepam 1mg 2x per day [Concomitant]
  6. COENZYME Q10 [Concomitant]
     Active Substance: DIETARY SUPPLEMENT\UBIDECARENONE
  7. PRILOSEC [Concomitant]
     Active Substance: OMEPRAZOLE MAGNESIUM
  8. VITAMIN B [Concomitant]
     Active Substance: VITAMIN B
  9. FISH OIL [Concomitant]
     Active Substance: FISH OIL
  10. Joint supplement [Concomitant]

REACTIONS (8)
  - Therapy change [None]
  - Anxiety [None]
  - Tremor [None]
  - Screaming [None]
  - Suicidal ideation [None]
  - Panic reaction [None]
  - Feeling abnormal [None]
  - Impaired work ability [None]

NARRATIVE: CASE EVENT DATE: 20251022
